FAERS Safety Report 24900777 (Version 1)
Quarter: 2025Q1

REPORT INFORMATION
  Report Type: Report from Study
  Country: GB (occurrence: GB)
  Receive Date: 20250129
  Receipt Date: 20250129
  Transmission Date: 20250408
  Serious: Yes (Hospitalization, Other)
  Sender: Vantive US Healthcare
  Company Number: GB-VANTIVE-2025VAN000345

PATIENT
  Sex: Female
  Weight: 41 kg

DRUGS (2)
  1. CALCIUM CL\DEXTROSE\MAGNESIUM CL\SODIUM BICAR\SODIUM CL\SODIUM LACT [Suspect]
     Active Substance: CALCIUM CHLORIDE\DEXTROSE MONOHYDRATE\MAGNESIUM CHLORIDE\SODIUM BICARBONATE\SODIUM CHLORIDE\SODIUM L
     Route: 033
     Dates: start: 20250114, end: 20250115
  2. UNSPECIFIED INGREDIENT [Suspect]
     Active Substance: UNSPECIFIED INGREDIENT
     Route: 065

REACTIONS (2)
  - Peritoneal cloudy effluent [Not Recovered/Not Resolved]
  - Ultrafiltration failure [Unknown]
